FAERS Safety Report 7811893-X (Version None)
Quarter: 2011Q4

REPORT INFORMATION
  Report Type: 
  Country: None (occurrence: None)
  Receive Date: 20111013
  Receipt Date: 20111003
  Transmission Date: 20120403
  Serious: Yes (Hospitalization)
  Sender: FDA-Public Use
  Company Number: PHHY2010NL20469

PATIENT
  Sex: Male
  Weight: 85 kg

DRUGS (3)
  1. DIPIPERON [Concomitant]
  2. DIOVAN [Suspect]
     Indication: HYPERTENSION
     Dosage: 160 MG, QD
     Route: 048
     Dates: end: 20110916
  3. DICLOFENAC [Concomitant]

REACTIONS (7)
  - WOUND HAEMORRHAGE [None]
  - OVERWEIGHT [None]
  - INJURY [None]
  - WOUND [None]
  - WEIGHT INCREASED [None]
  - ACCIDENT [None]
  - LOSS OF CONSCIOUSNESS [None]
